FAERS Safety Report 11248875 (Version 1)
Quarter: 2015Q3

REPORT INFORMATION
  Report Type: Spontaneous
  Country: US (occurrence: US)
  Receive Date: 20150708
  Receipt Date: 20150708
  Transmission Date: 20151125
  Serious: No
  Sender: FDA-Public Use
  Company Number: US-ELI_LILLY_AND_COMPANY-US201102003544

PATIENT
  Age: 33 Year
  Sex: Male

DRUGS (1)
  1. PROZAC [Suspect]
     Active Substance: FLUOXETINE HYDROCHLORIDE
     Indication: PANIC DISORDER
     Dosage: 40 MG, DAILY (1/D)
     Dates: start: 1999

REACTIONS (3)
  - Sexual dysfunction [Unknown]
  - Irritability [Unknown]
  - Social fear [Unknown]
